FAERS Safety Report 10075824 (Version 2)
Quarter: 2014Q2

REPORT INFORMATION
  Report Type: Spontaneous
  Country: GB (occurrence: GB)
  Receive Date: 20140414
  Receipt Date: 20140414
  Transmission Date: 20141212
  Serious: Yes (Other)
  Sender: FDA-Public Use
  Company Number: GB-BAYER-2014-026194

PATIENT
  Sex: Female

DRUGS (1)
  1. MIRENA [Suspect]
     Dosage: 20 MCG/24HR, CONT
     Route: 015
     Dates: start: 2005, end: 20140331

REACTIONS (6)
  - Device breakage [None]
  - Device dislocation [None]
  - Post procedural haemorrhage [None]
  - Device misuse [None]
  - Amenorrhoea [None]
  - Procedural pain [None]
